FAERS Safety Report 6714689-5 (Version None)
Quarter: 2010Q2

REPORT INFORMATION
  Report Type: 
  Country: None (occurrence: None)
  Receive Date: 20100507
  Receipt Date: 20100427
  Transmission Date: 20101027
  Serious: No
  Sender: FDA-Public Use
  Company Number: US-BIOGENIDEC-2010BI014417

PATIENT
  Sex: Female

DRUGS (2)
  1. TYSABRI [Suspect]
     Indication: MULTIPLE SCLEROSIS
     Route: 042
     Dates: start: 20080609, end: 20080707
  2. TYSABRI [Suspect]
     Route: 042
     Dates: start: 20090108

REACTIONS (2)
  - EAR INFECTION [None]
  - EUSTACHIAN TUBE DISORDER [None]
